FAERS Safety Report 5248065-1 (Version None)
Quarter: 2007Q1

REPORT INFORMATION
  Report Type: 
  Country: None (occurrence: None)
  Receive Date: 20070222
  Receipt Date: 20070206
  Transmission Date: 20070707
  Serious: Yes (Life-Threatening)
  Sender: FDA-Public Use
  Company Number: US019350

PATIENT
  Age: 67 Year
  Sex: Male

DRUGS (7)
  1. TRISENOX [Suspect]
     Indication: ACUTE PROMYELOCYTIC LEUKAEMIA
     Dosage: 9.69 MG Q1D INTRAVENOUS DRIP
     Route: 041
     Dates: start: 20050729, end: 20050911
  2. DALTEPARIN SODIUM [Concomitant]
  3. METHYLPHENIDATE HCL [Concomitant]
  4. ALPRAZOLAM [Concomitant]
  5. MILNACIPRAN HYDROCHLORIDE [Concomitant]
  6. AMIKACIN SULFATE [Concomitant]
  7. PAROXETINE HYDROCHLORIDE [Concomitant]

REACTIONS (7)
  - BLOOD ALKALINE PHOSPHATASE INCREASED [None]
  - CATHETER RELATED INFECTION [None]
  - ELECTROCARDIOGRAM QT PROLONGED [None]
  - GAMMA-GLUTAMYLTRANSFERASE INCREASED [None]
  - HYPERGLYCAEMIA [None]
  - PATHOGEN RESISTANCE [None]
  - STAPHYLOCOCCAL INFECTION [None]
